FAERS Safety Report 4702674-4 (Version None)
Quarter: 2005Q2

REPORT INFORMATION
  Report Type: 
  Country: None (occurrence: None)
  Receive Date: 20050629
  Receipt Date: 20041129
  Transmission Date: 20051028
  Serious: No
  Sender: FDA-Public Use
  Company Number: US-GLAXOSMITHKLINE-A0535633A

PATIENT
  Age: 31 Year
  Sex: Female

DRUGS (1)
  1. ZYBAN [Suspect]
     Dosage: 2TAB TWICE PER DAY
     Route: 048

REACTIONS (2)
  - HYPERSENSITIVITY [None]
  - PRURITUS [None]
